FAERS Safety Report 10522083 (Version 1)
Quarter: 2014Q4

REPORT INFORMATION
  Report Type: Spontaneous
  Country: US (occurrence: US)
  Receive Date: 20141016
  Receipt Date: 20141016
  Transmission Date: 20150528
  Serious: No
  Sender: FDA-Public Use
  Company Number: US-PFIZER INC-2014281853

PATIENT
  Age: 33 Year
  Sex: Female
  Weight: 61 kg

DRUGS (2)
  1. PRISTIQ EXTENDED RELEASE [Suspect]
     Active Substance: DESVENLAFAXINE SUCCINATE
     Indication: ANXIETY
  2. PRISTIQ EXTENDED RELEASE [Suspect]
     Active Substance: DESVENLAFAXINE SUCCINATE
     Indication: DEPRESSION
     Dosage: 100 MG, 1X/DAY
     Dates: start: 201305

REACTIONS (5)
  - Feeling abnormal [Unknown]
  - Increased appetite [Unknown]
  - Hunger [Unknown]
  - Anxiety [Unknown]
  - Head discomfort [Unknown]

NARRATIVE: CASE EVENT DATE: 20141010
